FAERS Safety Report 12520455 (Version 1)
Quarter: 2016Q3

REPORT INFORMATION
  Report Type: Spontaneous
  Country: US (occurrence: US)
  Receive Date: 20160701
  Receipt Date: 20160701
  Transmission Date: 20161109
  Serious: Yes (Other)
  Sender: FDA-Public Use
  Company Number: US-ROCHE-1787021

PATIENT
  Age: 41 Year
  Sex: Female

DRUGS (1)
  1. RITUXAN [Suspect]
     Active Substance: RITUXIMAB
     Indication: PULMONARY HYPERTENSION
     Route: 042

REACTIONS (3)
  - Pruritus [Recovered/Resolved]
  - Seizure [Recovered/Resolved]
  - Off label use [Unknown]
